FAERS Safety Report 6299505-0 (Version None)
Quarter: 2009Q3

REPORT INFORMATION
  Report Type: 
  Country: None (occurrence: None)
  Receive Date: 20090806
  Receipt Date: 20090804
  Transmission Date: 20100115
  Serious: Yes (Hospitalization)
  Sender: FDA-Public Use
  Company Number: D0062063A

PATIENT
  Sex: Female
  Weight: 50 kg

DRUGS (6)
  1. ARIXTRA [Suspect]
     Route: 065
     Dates: start: 20090519, end: 20090523
  2. ENOXAPARIN SODIUM [Concomitant]
     Route: 058
     Dates: end: 20090518
  3. GABAPENTIN [Concomitant]
     Indication: POLYNEUROPATHY
     Route: 065
  4. BISOPROLOL [Concomitant]
     Indication: TACHYCARDIA
     Route: 065
  5. PANTOPRAZOL [Concomitant]
     Indication: GASTRITIS
     Route: 065
  6. BUDESONIDE [Concomitant]
     Route: 065
     Dates: start: 20090415

REACTIONS (3)
  - ANAEMIA [None]
  - PANCYTOPENIA [None]
  - THROMBOCYTOPENIA [None]
